FAERS Safety Report 21034893 (Version 7)
Quarter: 2022Q4

REPORT INFORMATION
  Report Type: Report from Study
  Country: US (occurrence: US)
  Receive Date: 20220701
  Receipt Date: 20221021
  Transmission Date: 20230113
  Serious: Yes (Other)
  Sender: FDA-Public Use
  Company Number: US-HBP-2021US024017

PATIENT
  Sex: Female
  Weight: 67.574 kg

DRUGS (7)
  1. TRUSELTIQ [Suspect]
     Active Substance: INFIGRATINIB
     Indication: Cholangiocarcinoma
     Dosage: 100 MILLIGRAM, QD FOR 21 DAYS, OFF 7 DAYS
     Route: 048
     Dates: start: 20211115
  2. TRUSELTIQ [Suspect]
     Active Substance: INFIGRATINIB
     Dosage: 100 MILLIGRAM, QD FOR 21 DAYS, OFF 7 DAYS
     Route: 048
     Dates: end: 202209
  3. CALCIUM [Concomitant]
     Active Substance: CALCIUM
     Dosage: UNK, UNKNOWN
  4. POTASSIUM [Concomitant]
     Active Substance: POTASSIUM
     Dosage: UNK, UNKNOWN
  5. IMODIUM [Concomitant]
     Active Substance: LOPERAMIDE HYDROCHLORIDE
     Dosage: UNK, UNKNOWN
  6. REGLAN [Concomitant]
     Active Substance: METOCLOPRAMIDE HYDROCHLORIDE
     Dosage: UNK, UNKNOWN
  7. ZOFRAN [Concomitant]
     Active Substance: ONDANSETRON HYDROCHLORIDE
     Dosage: UNK, UNKNOWN

REACTIONS (34)
  - Haematemesis [Recovered/Resolved]
  - Melaena [Recovered/Resolved]
  - Visual impairment [Not Recovered/Not Resolved]
  - Neuropathy peripheral [Not Recovered/Not Resolved]
  - Peripheral swelling [Recovered/Resolved]
  - Skin exfoliation [Not Recovered/Not Resolved]
  - Myalgia [Unknown]
  - Muscle spasms [Unknown]
  - Hypogeusia [Unknown]
  - Ocular icterus [Recovered/Resolved]
  - Axillary mass [Not Recovered/Not Resolved]
  - Limb mass [Not Recovered/Not Resolved]
  - Ageusia [Not Recovered/Not Resolved]
  - Oral mucosal blistering [Recovering/Resolving]
  - Pain [Not Recovered/Not Resolved]
  - Neoplasm [Not Recovered/Not Resolved]
  - Hypophagia [Recovering/Resolving]
  - Gait disturbance [Recovered/Resolved]
  - Incorrect dosage administered [Unknown]
  - Sleep disorder due to a general medical condition [Unknown]
  - Weight decreased [Recovering/Resolving]
  - Vomiting [Recovering/Resolving]
  - Nausea [Recovering/Resolving]
  - Diarrhoea [Not Recovered/Not Resolved]
  - Abdominal pain upper [Unknown]
  - Dysgeusia [Unknown]
  - Nail disorder [Unknown]
  - Alopecia [Not Recovered/Not Resolved]
  - Vision blurred [Not Recovered/Not Resolved]
  - Decreased appetite [Not Recovered/Not Resolved]
  - Blood calcium decreased [Unknown]
  - Onychomadesis [Not Recovered/Not Resolved]
  - Stomatitis [Recovering/Resolving]
  - Fatigue [Not Recovered/Not Resolved]
